FAERS Safety Report 9114930 (Version 1)
Quarter: 2013Q1

REPORT INFORMATION
  Report Type: Spontaneous
  Country: US (occurrence: US)
  Receive Date: 20130128
  Receipt Date: 20130128
  Transmission Date: 20140127
  Serious: No
  Sender: FDA-Public Use
  Company Number: US-ASTRAZENECA-2012SE95228

PATIENT
  Sex: Male

DRUGS (7)
  1. CRESTOR [Suspect]
     Indication: HYPERLIPIDAEMIA
     Route: 048
  2. OMEPRAZOLE [Suspect]
     Route: 048
  3. BUSPAR [Concomitant]
  4. CITALOPRAM [Concomitant]
  5. METFORMIN [Concomitant]
  6. VITAMIN D [Concomitant]
  7. CALCIUM [Concomitant]

REACTIONS (3)
  - Hyperlipidaemia [Unknown]
  - Low density lipoprotein increased [Unknown]
  - Drug ineffective [Unknown]
